FAERS Safety Report 14856495 (Version 1)
Quarter: 2018Q2

REPORT INFORMATION
  Report Type: Spontaneous
  Country: US (occurrence: US)
  Receive Date: 20180507
  Receipt Date: 20180507
  Transmission Date: 20180711
  Serious: No
  Sender: FDA-Public Use
  Company Number: US-ROCHE-2073658

PATIENT
  Sex: Female

DRUGS (6)
  1. AMITRIPTYLINE HCL [Concomitant]
     Active Substance: AMITRIPTYLINE
     Dosage: ONGING: UNKNOWN
     Route: 065
  2. DIOVAN [Concomitant]
     Active Substance: VALSARTAN
     Dosage: ONGING: UNKNOWN
     Route: 065
  3. ANORO ELLIPTA [Concomitant]
     Active Substance: UMECLIDINIUM BROMIDE\VILANTEROL TRIFENATATE
     Dosage: ONGING: UNKNOWN
     Route: 065
  4. ASPIRIN. [Concomitant]
     Active Substance: ASPIRIN
     Dosage: ONGING: UNKNOWN
     Route: 065
  5. CLARITIN [Concomitant]
     Active Substance: LORATADINE
     Dosage: ONGING: UNKNOWN
     Route: 065
  6. ESBRIET [Suspect]
     Active Substance: PIRFENIDONE
     Indication: IDIOPATHIC PULMONARY FIBROSIS
     Dosage: ONGOING: UNKNOWN
     Route: 048
     Dates: start: 20171002

REACTIONS (1)
  - Tinnitus [Unknown]
